FAERS Safety Report 6086346-2 (Version None)
Quarter: 2009Q1

REPORT INFORMATION
  Report Type: 
  Country: None (occurrence: None)
  Receive Date: 20090220
  Receipt Date: 20090218
  Transmission Date: 20090719
  Serious: Yes (Hospitalization)
  Sender: FDA-Public Use
  Company Number: BR-ABBOTT-09P-020-0557951-00

PATIENT
  Sex: Male

DRUGS (1)
  1. HUMIRA [Suspect]
     Indication: RHEUMATOID ARTHRITIS
     Route: 058
     Dates: start: 20081110, end: 20090120

REACTIONS (4)
  - HEPATIC INFECTION [None]
  - LIVER DISORDER [None]
  - LOCALISED INFECTION [None]
  - PNEUMONIA [None]
